FAERS Safety Report 4540559-7 (Version None)
Quarter: 2004Q4

REPORT INFORMATION
  Report Type: 
  Country: None (occurrence: None)
  Receive Date: 20041229
  Receipt Date: 20041001
  Transmission Date: 20050328
  Serious: Yes (Death, Hospitalization, Other)
  Sender: FDA-Public Use
  Company Number: PHEH2004US10617

PATIENT
  Age: 66 Year
  Sex: Male

DRUGS (11)
  1. ALLOPURINOL TABLETS USP (NGX) [Concomitant]
     Dosage: 300 G, QD
  2. VASOTEC [Concomitant]
     Dosage: 10 MG, BID
  3. LOPID [Concomitant]
     Dosage: 600 MG, BID
  4. TOPROL-XL [Concomitant]
     Dosage: 50 MG, QD
  5. GLIPIZIDE TABLETS USP (NGX) [Concomitant]
     Dosage: 5 MG, QD
  6. MELPHALAN [Concomitant]
  7. THALIDOMIDE [Concomitant]
  8. DECADRON                                /CAN/ [Concomitant]
  9. PREDNISONE TABLETS USP (NGX) [Concomitant]
  10. PROCRIT [Concomitant]
  11. ZOMETA [Suspect]
     Indication: MULTIPLE MYELOMA
     Dosage: QMO

REACTIONS (32)
  - ALBUMIN GLOBULIN RATIO DECREASED [None]
  - ANAEMIA [None]
  - ARTHRALGIA [None]
  - BACTERIAL INFECTION [None]
  - BLOOD ALBUMIN DECREASED [None]
  - BLOOD CREATININE INCREASED [None]
  - BLOOD UREA INCREASED [None]
  - BONE DEBRIDEMENT [None]
  - BONE DISORDER [None]
  - CARDIAC FAILURE HIGH OUTPUT [None]
  - CORONARY ARTERY DISEASE [None]
  - CORONARY ARTERY SURGERY [None]
  - DENTAL CARIES [None]
  - DISEASE PROGRESSION [None]
  - GLOBULINS INCREASED [None]
  - HAEMATOCRIT DECREASED [None]
  - HAEMOGLOBIN DECREASED [None]
  - HEPATORENAL SYNDROME [None]
  - LIVER FUNCTION TEST ABNORMAL [None]
  - MALAISE [None]
  - MULTIPLE MYELOMA [None]
  - OSTEOARTHRITIS [None]
  - OSTEOMYELITIS [None]
  - OSTEONECROSIS [None]
  - PROTEIN TOTAL INCREASED [None]
  - PYREXIA [None]
  - RED BLOOD CELL COUNT DECREASED [None]
  - RENAL DISORDER [None]
  - SEPSIS SYNDROME [None]
  - SEQUESTRECTOMY [None]
  - TOOTH EXTRACTION [None]
  - TRANSAMINASES INCREASED [None]
